FAERS Safety Report 21242510 (Version 1)
Quarter: 2022Q3

REPORT INFORMATION
  Report Type: Spontaneous
  Country: US (occurrence: None)
  Receive Date: 20220822
  Receipt Date: 20220822
  Transmission Date: 20221027
  Serious: Yes (Life-Threatening)
  Sender: FDA-Public Use
  Company Number: None

PATIENT
  Age: 44 Year
  Sex: Female
  Weight: 110.25 kg

DRUGS (1)
  1. LEVETIRACETAM [Suspect]
     Active Substance: LEVETIRACETAM
     Indication: Epilepsy
     Dosage: OTHER QUANTITY : 1 TABLET(S);?FREQUENCY : AT BEDTIME;?
     Route: 048
     Dates: start: 20220501, end: 20220603

REACTIONS (8)
  - Product quality issue [None]
  - Swelling face [None]
  - Urticaria [None]
  - Anaphylactic reaction [None]
  - Pharyngeal swelling [None]
  - Swollen tongue [None]
  - Dyspnoea [None]
  - Manufacturing materials issue [None]

NARRATIVE: CASE EVENT DATE: 20220603
